FAERS Safety Report 20975584 (Version 3)
Quarter: 2023Q1

REPORT INFORMATION
  Report Type: Spontaneous
  Country: US (occurrence: US)
  Receive Date: 20220617
  Receipt Date: 20230203
  Transmission Date: 20230417
  Serious: No
  Sender: FDA-Public Use
  Company Number: US-BIOGEN-2022BI01132780

PATIENT
  Sex: Female

DRUGS (2)
  1. TECFIDERA [Suspect]
     Active Substance: DIMETHYL FUMARATE
     Indication: Multiple sclerosis
     Dosage: 120 MG IN AM AND 240 MG IN EVENING
     Route: 050
     Dates: start: 202203
  2. TECFIDERA [Suspect]
     Active Substance: DIMETHYL FUMARATE
     Dosage: 120 MG IN MORNING, 2- 120MG IN EVENING
     Route: 050
     Dates: start: 2014

REACTIONS (5)
  - Prescribed underdose [Not Recovered/Not Resolved]
  - Blood pressure increased [Unknown]
  - Weight increased [Unknown]
  - Tooth fracture [Unknown]
  - Bruxism [Unknown]

NARRATIVE: CASE EVENT DATE: 20140101
